FAERS Safety Report 10910294 (Version 1)
Quarter: 2015Q1

REPORT INFORMATION
  Report Type: Spontaneous
  Country: US (occurrence: US)
  Receive Date: 20150312
  Receipt Date: 20150312
  Transmission Date: 20150721
  Serious: No
  Sender: FDA-Public Use
  Company Number: US-SA-2014SA120831

PATIENT
  Age: 61 Year
  Sex: Female

DRUGS (2)
  1. NASACORT ALLERGY 24HR [Suspect]
     Active Substance: TRIAMCINOLONE ACETONIDE
     Indication: NASAL DRYNESS
     Dosage: DOSE: 60 SPRAYS/BOTTLE ONCE DAILY??AT ABOUT 11AM
     Route: 065
     Dates: start: 20140823, end: 20140830
  2. NASACORT ALLERGY 24HR [Suspect]
     Active Substance: TRIAMCINOLONE ACETONIDE
     Indication: HYPERSENSITIVITY
     Dosage: DOSE: 60 SPRAYS/BOTTLE ONCE DAILY??AT ABOUT 11AM
     Route: 065
     Dates: start: 20140823, end: 20140830

REACTIONS (2)
  - Heart rate increased [Recovered/Resolved]
  - Unevaluable event [Recovered/Resolved]

NARRATIVE: CASE EVENT DATE: 20140823
